FAERS Safety Report 6443900-3 (Version None)
Quarter: 2009Q4

REPORT INFORMATION
  Report Type: 
  Country: None (occurrence: None)
  Receive Date: 20091113
  Receipt Date: 20091028
  Transmission Date: 20100525
  Serious: No
  Sender: FDA-Public Use
  Company Number: 427880

PATIENT
  Age: 45 Year
  Sex: Female
  Weight: 98 kg

DRUGS (9)
  1. CIPROFLAXACIN [Suspect]
     Indication: DRUG USE FOR UNKNOWN INDICATION
     Dosage: 400 MG, 1 DAY, INTRAVENOUS
     Route: 042
  2. DIMENHYDRINATE [Concomitant]
  3. DIMENHYDRINATE [Concomitant]
  4. FENTANYL-100 [Concomitant]
  5. METOCLOPRAMIDE [Concomitant]
  6. METRONIDAZOLE [Concomitant]
  7. MIDAZOLAM HCL [Concomitant]
  8. MORPHINE [Concomitant]
  9. PERCOCET [Concomitant]

REACTIONS (4)
  - FEELING ABNORMAL [None]
  - HEART RATE DECREASED [None]
  - LOSS OF CONSCIOUSNESS [None]
  - URINARY INCONTINENCE [None]
